FAERS Safety Report 23065687 (Version 1)
Quarter: 2023Q4

REPORT INFORMATION
  Report Type: Report from Study
  Country: MX (occurrence: MX)
  Receive Date: 20231014
  Receipt Date: 20231014
  Transmission Date: 20240109
  Serious: Yes (Hospitalization)
  Sender: FDA-Public Use
  Company Number: MX-002147023-NVSC2023MX208386

PATIENT
  Sex: Female

DRUGS (1)
  1. IMATINIB [Suspect]
     Active Substance: IMATINIB
     Indication: Chronic myeloid leukaemia
     Dosage: UNK
     Route: 048

REACTIONS (7)
  - Diabetes mellitus [Unknown]
  - Blood glucose increased [Unknown]
  - Drug intolerance [Unknown]
  - Fatigue [Unknown]
  - Dizziness [Unknown]
  - Anaemia [Unknown]
  - Vomiting [Unknown]
